FAERS Safety Report 8074791-5 (Version None)
Quarter: 2012Q1

REPORT INFORMATION
  Report Type: 
  Country: None (occurrence: None)
  Receive Date: 20120126
  Receipt Date: 20120123
  Transmission Date: 20120608
  Serious: No
  Sender: FDA-Public Use
  Company Number: US-PFIZER INC-2011296830

PATIENT
  Sex: Female
  Weight: 53 kg

DRUGS (1)
  1. LIPITOR [Suspect]
     Indication: BLOOD CHOLESTEROL INCREASED
     Dosage: 10 MG, 1X/DAY
     Route: 048
     Dates: end: 20111101

REACTIONS (5)
  - MUSCULAR WEAKNESS [None]
  - OCULAR ICTERUS [None]
  - HYPOKINESIA [None]
  - ARTHROPATHY [None]
  - PAIN [None]
